FAERS Safety Report 16945412 (Version 1)
Quarter: 2019Q4

REPORT INFORMATION
  Report Type: Spontaneous
  Country: MY (occurrence: MY)
  Receive Date: 20191022
  Receipt Date: 20191022
  Transmission Date: 20200122
  Serious: Yes (Other)
  Sender: FDA-Public Use
  Company Number: MY-MYLANLABS-2019M1099955

PATIENT
  Age: 72 Year
  Sex: Male

DRUGS (2)
  1. CISPLATIN. [Suspect]
     Active Substance: CISPLATIN
     Indication: ADENOSQUAMOUS CELL LUNG CANCER STAGE II
     Dosage: DAY 1; FOUR CYCLES
     Route: 065
  2. VINORELBINE [Suspect]
     Active Substance: VINORELBINE TARTRATE
     Indication: ADENOSQUAMOUS CELL LUNG CANCER STAGE II
     Dosage: DAYS 1 AND 8; FOUR CYCLES
     Route: 065

REACTIONS (2)
  - Sarcoma [Unknown]
  - Malignant transformation [Unknown]
